FAERS Safety Report 21712687 (Version 1)
Quarter: 2022Q4

REPORT INFORMATION
  Report Type: Spontaneous
  Country: HR (occurrence: HR)
  Receive Date: 20221212
  Receipt Date: 20221212
  Transmission Date: 20230113
  Serious: Yes (Hospitalization, Other)
  Sender: FDA-Public Use
  Company Number: HR-009507513-2212HRV003516

PATIENT
  Sex: Female

DRUGS (3)
  1. KEYTRUDA [Suspect]
     Active Substance: PEMBROLIZUMAB
     Indication: Adenocarcinoma metastatic
     Dosage: UNK
     Dates: start: 202003
  2. KEYTRUDA [Suspect]
     Active Substance: PEMBROLIZUMAB
     Dosage: 20TH DOSE
     Dates: start: 2022, end: 2022
  3. KEYTRUDA [Suspect]
     Active Substance: PEMBROLIZUMAB
     Dosage: 33RD DOSE
     Dates: start: 202208, end: 202208

REACTIONS (7)
  - COVID-19 pneumonia [Unknown]
  - Respiratory failure [Unknown]
  - Pulmonary embolism [Unknown]
  - Pneumonitis [Unknown]
  - Tumour pseudoprogression [Unknown]
  - Malignant neoplasm progression [Unknown]
  - Pericardial cyst [Recovering/Resolving]

NARRATIVE: CASE EVENT DATE: 20201101
